FAERS Safety Report 18361780 (Version 2)
Quarter: 2020Q4

REPORT INFORMATION
  Report Type: Spontaneous
  Country: ES (occurrence: ES)
  Receive Date: 20201008
  Receipt Date: 20201202
  Transmission Date: 20210114
  Serious: Yes (Disabling)
  Sender: FDA-Public Use
  Company Number: ES-MYLANLABS-2020M1084306

PATIENT
  Age: 71 Year
  Sex: Female
  Weight: 73 kg

DRUGS (9)
  1. MELPHALAN. [Suspect]
     Active Substance: MELPHALAN
     Indication: PLASMA CELL MYELOMA
     Dosage: UNK
     Route: 065
  2. VELCADE [Suspect]
     Active Substance: BORTEZOMIB
     Indication: PLASMA CELL MYELOMA
     Dosage: UNK
     Route: 058
  3. VELCADE [Suspect]
     Active Substance: BORTEZOMIB
     Dosage: 1.3 MILLIGRAM/SQ. METER, QW
     Route: 058
     Dates: start: 20200626, end: 20200817
  4. PREDNISONE. [Suspect]
     Active Substance: PREDNISONE
     Dosage: 110 MILLIGRAM, 6XW
     Route: 065
     Dates: start: 20200626, end: 20200817
  5. ACICLOVIR [Concomitant]
     Active Substance: ACYCLOVIR
     Indication: PROPHYLAXIS
     Dosage: 800 MILLIGRAM
     Route: 048
     Dates: start: 20200626
  6. SINEMET [Concomitant]
     Active Substance: CARBIDOPA\LEVODOPA
     Indication: PARKINSON^S DISEASE
     Dosage: 25/100 MG
     Route: 048
     Dates: start: 20200414
  7. MELPHALAN. [Suspect]
     Active Substance: MELPHALAN
     Dosage: 16 MILLIGRAM, 6XW
     Route: 065
     Dates: start: 20200626, end: 20200817
  8. PREDNISONE. [Suspect]
     Active Substance: PREDNISONE
     Indication: PLASMA CELL MYELOMA
     Dosage: UNK
     Route: 065
  9. BETMIGA [Concomitant]
     Active Substance: MIRABEGRON
     Indication: PARKINSON^S DISEASE
     Dosage: 50 MILLIGRAM
     Route: 048
     Dates: start: 20200505

REACTIONS (1)
  - Neuropathy peripheral [Recovered/Resolved]

NARRATIVE: CASE EVENT DATE: 20200817
